FAERS Safety Report 4313980-X (Version None)
Quarter: 2004Q1

REPORT INFORMATION
  Report Type: 
  Country: None (occurrence: None)
  Receive Date: 20040305
  Receipt Date: 20040302
  Transmission Date: 20041129
  Serious: Yes (Hospitalization, Other)
  Sender: FDA-Public Use
  Company Number: 200402788

PATIENT
  Sex: Female

DRUGS (3)
  1. ACETAMINOPHEN [Suspect]
     Dosage: OTHER
     Route: 050
  2. DICLOFENAC [Suspect]
  3. NIMESULIDE [Suspect]

REACTIONS (4)
  - MATERNAL DRUGS AFFECTING FOETUS [None]
  - OLIGOHYDRAMNIOS [None]
  - PREMATURE BABY [None]
  - RENAL FAILURE NEONATAL [None]
